FAERS Safety Report 8845201 (Version 1)
Quarter: 2012Q4

REPORT INFORMATION
  Report Type: Spontaneous
  Country: US (occurrence: None)
  Receive Date: 20121016
  Receipt Date: 20121016
  Transmission Date: 20130627
  Serious: No
  Sender: FDA-Public Use
  Company Number: None

PATIENT
  Age: 77 Year
  Sex: Male

DRUGS (7)
  1. REVLIMID [Suspect]
     Indication: MULTIPLE MYELOMA
     Route: 048
     Dates: start: 201107, end: 201204
  2. AMLODIPINE [Concomitant]
  3. SENNOSIDES [Concomitant]
  4. LACTULOSE [Concomitant]
  5. OMEPRAZOLE [Concomitant]
  6. ASA [Concomitant]
  7. DOCUSATE [Concomitant]

REACTIONS (3)
  - Neutropenia [None]
  - Haematocrit decreased [None]
  - Acute myeloid leukaemia [None]
